FAERS Safety Report 13068590 (Version 1)
Quarter: 2016Q4

REPORT INFORMATION
  Report Type: Report from Study
  Country: US (occurrence: US)
  Receive Date: 20161228
  Receipt Date: 20161228
  Transmission Date: 20170207
  Serious: Yes (Other)
  Sender: FDA-Public Use
  Company Number: US-GILEAD-2016-0248758

PATIENT
  Age: 57 Year
  Sex: Male

DRUGS (2)
  1. AMBRISENTAN [Suspect]
     Active Substance: AMBRISENTAN
     Indication: PRODUCT USED FOR UNKNOWN INDICATION
     Dosage: 10 MG, QD
     Route: 065
  2. VELETRI [Concomitant]
     Active Substance: EPOPROSTENOL

REACTIONS (5)
  - Joint injury [Unknown]
  - Fall [Unknown]
  - Device related infection [Unknown]
  - Infusion site pain [Unknown]
  - Infusion site erythema [Unknown]

NARRATIVE: CASE EVENT DATE: 201609
